FAERS Safety Report 7487206 (Version 2)
Quarter: 2020Q3

REPORT INFORMATION
  Report Type: Report from Study
  Country: KR (occurrence: KR)
  Receive Date: 20100719
  Receipt Date: 20100727
  Transmission Date: 20201105
  Serious: Yes (Hospitalization)
  Sender: FDA-Public Use
  Company Number: KR-WYE-H16052110

PATIENT
  Age: 70 Year
  Sex: Male
  Weight: 69.7 kg

DRUGS (8)
  1. REBAMIPIDE [Concomitant]
     Active Substance: REBAMIPIDE
     Indication: PAIN
     Dosage: NOT PROVIDED
     Route: 065
     Dates: start: 20100410
  2. VALSARTAN. [Concomitant]
     Active Substance: VALSARTAN
     Indication: HYPERTENSION
     Dosage: NOT PROVIDED
     Route: 065
     Dates: start: 20090424
  3. CHLORPHENESIN CARBAMATE [Concomitant]
     Active Substance: CHLORPHENESIN CARBAMATE
     Indication: PAIN
     Dosage: NOT PROVIDED
     Route: 065
     Dates: start: 20100410
  4. SORAFENIB [Suspect]
     Active Substance: SORAFENIB
     Route: 048
     Dates: start: 20100704
  5. AMLODIPINE [Concomitant]
     Active Substance: AMLODIPINE BESYLATE
     Indication: HYPERTENSION
     Dosage: NOT PROVIDED
     Route: 065
     Dates: start: 20090424
  6. ACECLOFENAC [Concomitant]
     Active Substance: ACECLOFENAC
     Indication: PAIN
     Dosage: NOT PROVIDED
     Route: 065
     Dates: start: 20100410
  7. FINASTERIDE. [Concomitant]
     Active Substance: FINASTERIDE
     Indication: DYSURIA
     Dosage: NOT PROVIDED
     Route: 065
     Dates: start: 20100324
  8. SORAFENIB [Suspect]
     Active Substance: SORAFENIB
     Indication: RENAL CELL CARCINOMA
     Route: 065
     Dates: start: 20090327, end: 20100701

REACTIONS (1)
  - Cerebral infarction [Recovered/Resolved]

NARRATIVE: CASE EVENT DATE: 20100630
